APPROVED DRUG PRODUCT: TRIAMCINOLONE ACETONIDE
Active Ingredient: TRIAMCINOLONE ACETONIDE
Strength: 0.025%
Dosage Form/Route: OINTMENT;TOPICAL
Application: A088692 | Product #001
Applicant: PHARMADERM DIV ALTANA INC
Approved: Aug 2, 1984 | RLD: No | RS: No | Type: DISCN